FAERS Safety Report 6414475-X (Version None)
Quarter: 2009Q4

REPORT INFORMATION
  Report Type: 
  Country: None (occurrence: None)
  Receive Date: 20091026
  Receipt Date: 20091021
  Transmission Date: 20100525
  Serious: Yes (Death, Other)
  Sender: FDA-Public Use
  Company Number: PHHY2009FR45995

PATIENT
  Age: 7 Year

DRUGS (8)
  1. CYCLOSPORINE [Suspect]
     Indication: RENAL TRANSPLANT
     Route: 048
  2. PREDNISOLONE [Suspect]
     Indication: RENAL TRANSPLANT
     Dosage: 300 MG/M2, UNK
  3. PREDNISOLONE [Suspect]
     Dosage: 60 MG/M2/DAY
  4. PREDNISOLONE [Suspect]
     Dosage: 2.5 MG/M2/DAY
  5. AZATHIOPRINE [Suspect]
     Indication: RENAL TRANSPLANT
     Dosage: 3 MG/KG, UNK
  6. AZATHIOPRINE [Suspect]
     Dosage: 2 MG/KG/DAY
  7. AZATHIOPRINE [Suspect]
     Dosage: 1 MG/KG/DAY
  8. THYMOGLOBULIN [Concomitant]
     Indication: RENAL TRANSPLANT
     Dosage: 2 MG/KG/DAY

REACTIONS (4)
  - ANAESTHESIA [None]
  - BURKITT'S LYMPHOMA STAGE III [None]
  - HYPERCALCAEMIA [None]
  - MASS [None]
